FAERS Safety Report 5888324-2 (Version None)
Quarter: 2008Q3

REPORT INFORMATION
  Report Type: 
  Country: None (occurrence: None)
  Receive Date: 20080918
  Receipt Date: 20080912
  Transmission Date: 20090109
  Serious: Yes (Hospitalization, Other)
  Sender: FDA-Public Use
  Company Number: US-ASTRAZENECA-2008UW08630

PATIENT
  Age: 51 Year
  Sex: Male
  Weight: 140.6 kg

DRUGS (3)
  1. SEROQUEL [Suspect]
     Indication: DEPRESSION
     Route: 048
     Dates: start: 19960101, end: 20000901
  2. WELLBUTRIN [Concomitant]
     Dates: start: 20010426, end: 20051015
  3. ZOLOFT [Concomitant]
     Dates: start: 19990404, end: 20060821

REACTIONS (9)
  - ANORECTAL DISORDER [None]
  - CHEST PAIN [None]
  - DIABETES MELLITUS [None]
  - DIABETIC COMA [None]
  - HERNIA [None]
  - INFECTION [None]
  - INTERVERTEBRAL DISC PROTRUSION [None]
  - LOWER LIMB FRACTURE [None]
  - TOOTH EXTRACTION [None]
